FAERS Safety Report 15626645 (Version 1)
Quarter: 2018Q4

REPORT INFORMATION
  Report Type: Spontaneous
  Country: IN (occurrence: IN)
  Receive Date: 20181116
  Receipt Date: 20181116
  Transmission Date: 20190205
  Serious: Yes (Hospitalization)
  Sender: FDA-Public Use
  Company Number: IN-LANNETT COMPANY, INC.-IN-2018LAN001315

PATIENT
  Age: 58 Year
  Sex: Female

DRUGS (7)
  1. MONOCEF /00672202/ [Suspect]
     Active Substance: CEFTRIAXONE SODIUM
     Indication: PRODUCT USED FOR UNKNOWN INDICATION
     Dosage: UNK, 12 DAYS
     Route: 065
     Dates: start: 2017, end: 2017
  2. VANCOMYCIN [Suspect]
     Active Substance: VANCOMYCIN
     Indication: ACINETOBACTER INFECTION
     Dosage: 500 MG, BID
     Route: 042
     Dates: start: 2017, end: 2017
  3. CLINDAMYCIN HYDROCHLORIDE (300 MG) [Suspect]
     Active Substance: CLINDAMYCIN HYDROCHLORIDE
     Indication: ACINETOBACTER INFECTION
     Dosage: UNK
     Route: 065
     Dates: start: 2017, end: 2017
  4. PIPERACILLIN/TAZOBACTAM [Concomitant]
     Active Substance: PIPERACILLIN SODIUM\TAZOBACTAM SODIUM
     Indication: CANDIDA INFECTION
     Dosage: UNK, 15 DAYS
     Dates: start: 2017, end: 2017
  5. COLISTIN [Suspect]
     Active Substance: COLISTIN
     Indication: PRODUCT USED FOR UNKNOWN INDICATION
     Dosage: UNK, 12 DAYS
     Route: 042
     Dates: start: 2017, end: 2017
  6. FLUCONAZOLE. [Concomitant]
     Active Substance: FLUCONAZOLE
     Indication: CANDIDA INFECTION
     Dosage: 200 MG, BID
     Route: 042
     Dates: start: 2017, end: 2017
  7. METRONIDAZOLE. [Suspect]
     Active Substance: METRONIDAZOLE
     Indication: PRODUCT USED FOR UNKNOWN INDICATION
     Dosage: UNK, 12 DAYS
     Route: 065
     Dates: start: 2017, end: 2017

REACTIONS (1)
  - Candida infection [Unknown]
